FAERS Safety Report 6691740-2 (Version None)
Quarter: 2010Q2

REPORT INFORMATION
  Report Type: 
  Country: None (occurrence: None)
  Receive Date: 20100422
  Receipt Date: 20100111
  Transmission Date: 20101027
  Serious: No
  Sender: FDA-Public Use
  Company Number: US-ASTRAZENECA-2010SE01218

PATIENT
  Age: 94 Year
  Sex: Male
  Weight: 78.5 kg

DRUGS (2)
  1. TOPROL-XL [Suspect]
     Indication: VENTRICULAR FIBRILLATION
     Route: 048
     Dates: start: 20090101
  2. TOPROL-XL [Suspect]
     Route: 048
     Dates: start: 20090101

REACTIONS (2)
  - HEART RATE DECREASED [None]
  - PACEMAKER GENERATED ARRHYTHMIA [None]
